FAERS Safety Report 8203011-3 (Version None)
Quarter: 2012Q1

REPORT INFORMATION
  Report Type: 
  Country: None (occurrence: None)
  Receive Date: 20120312
  Receipt Date: 20120302
  Transmission Date: 20120608
  Serious: Yes (Life-Threatening, Hospitalization)
  Sender: FDA-Public Use
  Company Number: US-CELGENEUS-163-21880-12022700

PATIENT
  Sex: Male
  Weight: 93.978 kg

DRUGS (2)
  1. FLUID [Concomitant]
     Route: 065
     Dates: start: 20120219
  2. REVLIMID [Suspect]
     Indication: MULTIPLE MYELOMA
     Dosage: 10 MILLIGRAM
     Route: 048
     Dates: start: 20120201, end: 20120221

REACTIONS (2)
  - CLOSTRIDIAL INFECTION [None]
  - GRAFT VERSUS HOST DISEASE [None]
